FAERS Safety Report 4716428-6 (Version None)
Quarter: 2005Q3

REPORT INFORMATION
  Report Type: 
  Country: None (occurrence: None)
  Receive Date: 20050719
  Receipt Date: 20050707
  Transmission Date: 20060218
  Serious: Yes (Hospitalization)
  Sender: FDA-Public Use
  Company Number: US-JNJFOC-20050701590

PATIENT
  Sex: Female

DRUGS (15)
  1. INFLIXIMAB [Suspect]
     Indication: RHEUMATOID ARTHRITIS
     Route: 042
  2. CELEBREX [Concomitant]
  3. CALCIUM +D [Concomitant]
  4. EFFEXOR [Concomitant]
  5. FOSAMAX [Concomitant]
  6. HALCLON [Concomitant]
  7. INSULIN [Concomitant]
  8. LASIX [Concomitant]
  9. LEVOXYL [Concomitant]
  10. METHOTREXATE [Concomitant]
  11. PREMARIN [Concomitant]
  12. TOPROL-XL [Concomitant]
  13. VALIUM [Concomitant]
  14. PROTONIX [Concomitant]
  15. REGLAN [Concomitant]

REACTIONS (5)
  - ACUTE MYOCARDIAL INFARCTION [None]
  - DIABETES MELLITUS [None]
  - HIATUS HERNIA [None]
  - OESOPHAGITIS [None]
  - TRANSIENT ISCHAEMIC ATTACK [None]
